FAERS Safety Report 7540270-4 (Version None)
Quarter: 2011Q2

REPORT INFORMATION
  Report Type: 
  Country: None (occurrence: None)
  Receive Date: 20110610
  Receipt Date: 20110528
  Transmission Date: 20111010
  Serious: Yes (Other)
  Sender: FDA-Public Use
  Company Number: PHHY2011IT48456

PATIENT
  Age: 71 Year
  Sex: Female

DRUGS (2)
  1. IMATINIB MESYLATE [Suspect]
     Indication: CHRONIC MYELOID LEUKAEMIA
     Dosage: 600 MG, DAILY
  2. IMATINIB MESYLATE [Suspect]
     Dosage: 400 MG, DAILY

REACTIONS (8)
  - GENE MUTATION IDENTIFICATION TEST POSITIVE [None]
  - TUMOUR MARKER INCREASED [None]
  - LYMPHOCYTIC INFILTRATION [None]
  - PAPILLOEDEMA [None]
  - BLINDNESS UNILATERAL [None]
  - HYPOACUSIS [None]
  - BLAST CRISIS IN MYELOGENOUS LEUKAEMIA [None]
  - MUSCULAR WEAKNESS [None]
